FAERS Safety Report 14857004 (Version 1)
Quarter: 2018Q2

REPORT INFORMATION
  Report Type: Report from Study
  Country: JP (occurrence: JP)
  Receive Date: 20180507
  Receipt Date: 20180507
  Transmission Date: 20180711
  Serious: Yes (Hospitalization, Other)
  Sender: FDA-Public Use
  Company Number: JP-GILEAD-2011-0035387

PATIENT
  Age: 42 Year
  Sex: Male

DRUGS (7)
  1. FEIBA [Concomitant]
     Active Substance: ANTI-INHIBITOR COAGULANT COMPLEX
     Dates: start: 20090502, end: 20090507
  2. NOVOSEVEN [Concomitant]
     Active Substance: COAGULATION FACTOR VIIA RECOMBINANT HUMAN
     Dates: start: 20090401
  3. TRUVADA [Suspect]
     Active Substance: EMTRICITABINE\TENOFOVIR DISOPROXIL FUMARATE
     Indication: HIV INFECTION
     Route: 048
     Dates: start: 20060202
  4. FOSAMPRENAVIR [Suspect]
     Active Substance: FOSAMPRENAVIR
     Indication: HIV INFECTION
     Dosage: 1400 MG, BID
     Route: 048
     Dates: start: 20060202, end: 20090408
  5. FLUNITRAZEPAM [Concomitant]
     Active Substance: FLUNITRAZEPAM
     Dates: start: 20090401
  6. RALTEGRAVIR. [Concomitant]
     Active Substance: RALTEGRAVIR
     Indication: HIV INFECTION
     Dates: start: 20090409
  7. QUAZEPAM. [Concomitant]
     Active Substance: QUAZEPAM
     Dates: start: 20090401

REACTIONS (1)
  - Osteoporotic fracture [Recovered/Resolved]

NARRATIVE: CASE EVENT DATE: 20090502
